FAERS Safety Report 4696257-2 (Version None)
Quarter: 2005Q2

REPORT INFORMATION
  Report Type: 
  Country: None (occurrence: None)
  Receive Date: 20050621
  Receipt Date: 20050606
  Transmission Date: 20051028
  Serious: Yes (Death, Hospitalization)
  Sender: FDA-Public Use
  Company Number: 2005S1004570

PATIENT
  Age: 67 Year
  Sex: Female

DRUGS (2)
  1. CLOZAPINE [Suspect]
     Indication: SCHIZOPHRENIA
     Dosage: 75 MG; HS; PO
     Route: 048
     Dates: start: 20050114, end: 20050525
  2. CLOZAPINE [Suspect]
     Indication: SCHIZOPHRENIA
     Dosage: 100 MG; HS; PO
     Route: 048
     Dates: start: 20050114, end: 20050525

REACTIONS (2)
  - HYPOGLYCAEMIA [None]
  - SEPSIS [None]
